FAERS Safety Report 5520748-5 (Version None)
Quarter: 2007Q4

REPORT INFORMATION
  Report Type: 
  Country: None (occurrence: None)
  Receive Date: 20071119
  Receipt Date: 20071109
  Transmission Date: 20080405
  Serious: Yes (Hospitalization, Other)
  Sender: FDA-Public Use
  Company Number: US-PFIZER INC-2007095561

PATIENT
  Sex: Male
  Weight: 65.8 kg

DRUGS (3)
  1. CHANTIX [Suspect]
     Indication: SMOKING CESSATION THERAPY
     Dates: start: 20070301, end: 20070401
  2. OXYGEN [Concomitant]
  3. OTHER RESPIRATORY SYSTEM PRODUCTS [Concomitant]

REACTIONS (1)
  - PNEUMONIA [None]
